FAERS Safety Report 11585761 (Version 1)
Quarter: 2015Q4

REPORT INFORMATION
  Report Type: Spontaneous
  Country: US (occurrence: US)
  Receive Date: 20151001
  Receipt Date: 20151001
  Transmission Date: 20160304
  Serious: Yes (Hospitalization)
  Sender: FDA-Public Use
  Company Number: US-ELI_LILLY_AND_COMPANY-US201509009297

PATIENT
  Sex: Female

DRUGS (1)
  1. INSULIN HUMAN [Suspect]
     Active Substance: INSULIN HUMAN
     Indication: TYPE 2 DIABETES MELLITUS
     Dosage: 30 U, QD
     Route: 065
     Dates: start: 2010

REACTIONS (4)
  - Arthritis [Unknown]
  - Arthralgia [Recovered/Resolved]
  - Blood glucose decreased [Unknown]
  - Tremor [Unknown]

NARRATIVE: CASE EVENT DATE: 2014
